FAERS Safety Report 5658983-8 (Version None)
Quarter: 2008Q1

REPORT INFORMATION
  Report Type: 
  Country: None (occurrence: None)
  Receive Date: 20080310
  Receipt Date: 20070720
  Transmission Date: 20080703
  Serious: No
  Sender: FDA-Public Use
  Company Number: US-BAYER-200711562BCC

PATIENT
  Age: 86 Year
  Sex: Female
  Weight: 54 kg

DRUGS (5)
  1. ALEVE [Suspect]
     Indication: ARTHRALGIA
     Dosage: TOTAL DAILY DOSE: 440 MG  UNIT DOSE: 220 MG
     Route: 048
     Dates: start: 20070514
  2. ALEVE [Suspect]
     Dosage: AS USED: 110/220 MG  UNIT DOSE: 220 MG
     Route: 048
     Dates: start: 20070515
  3. FOSAMAX [Concomitant]
  4. MULTI-VITAMIN [Concomitant]
  5. CALCIUM SUPPLEMENT [Concomitant]

REACTIONS (6)
  - ABDOMINAL PAIN UPPER [None]
  - DISCOMFORT [None]
  - FEELING ABNORMAL [None]
  - NAUSEA [None]
  - NIGHTMARE [None]
  - STOMACH DISCOMFORT [None]
